FAERS Safety Report 8314736-3 (Version None)
Quarter: 2012Q1

REPORT INFORMATION
  Report Type: 
  Country: None (occurrence: None)
  Receive Date: 20120315
  Receipt Date: 20110322
  Transmission Date: 20120608
  Serious: Yes (Other)
  Sender: FDA-Public Use
  Company Number: PHHY2011US21635

PATIENT
  Age: 58 Year
  Sex: Male

DRUGS (6)
  1. MESALAMINE [Concomitant]
  2. GABAPENTIN [Concomitant]
  3. AMANTADINE HCL [Concomitant]
  4. GILENYA [Suspect]
     Indication: MULTIPLE SCLEROSIS RELAPSE
     Dosage: 0.5 MG, QD, ORAL
     Route: 048
     Dates: start: 20110125
  5. VITAMIN D [Concomitant]
  6. FAMPRIDINE [Concomitant]

REACTIONS (3)
  - PNEUMONIA [None]
  - DYSPNOEA [None]
  - CHEST PAIN [None]
